FAERS Safety Report 5156749-9 (Version None)
Quarter: 2006Q4

REPORT INFORMATION
  Report Type: 
  Country: None (occurrence: None)
  Receive Date: 20061115
  Receipt Date: 20061031
  Transmission Date: 20070319
  Serious: Yes (Other)
  Sender: FDA-Public Use
  Company Number: 15030

PATIENT
  Age: 49 Year
  Sex: Female
  Weight: 70 kg

DRUGS (1)
  1. PACLITAXEL.  MFR: MAYNE [Suspect]
     Indication: BREAST CANCER
     Dosage: 310 MG DAILY IV
     Route: 042
     Dates: start: 20061012

REACTIONS (2)
  - BONE PAIN [None]
  - DRUG INEFFECTIVE [None]
